FAERS Safety Report 17084425 (Version 1)
Quarter: 2019Q4

REPORT INFORMATION
  Report Type: Spontaneous
  Country: US (occurrence: US)
  Receive Date: 20191127
  Receipt Date: 20191127
  Transmission Date: 20200122
  Serious: Yes (Other)
  Sender: FDA-Public Use
  Company Number: US-BAYER-2019-210103

PATIENT
  Age: 45 Year
  Sex: Male

DRUGS (3)
  1. JIVI [Suspect]
     Active Substance: DAMOCTOCOG ALFA PEGOL
     Indication: FACTOR VIII DEFICIENCY
     Dosage: 45 IU/KG, EVERY 5 DAYS
     Dates: start: 2019
  2. JIVI [Suspect]
     Active Substance: DAMOCTOCOG ALFA PEGOL
     Indication: FACTOR VIII DEFICIENCY
     Dosage: 45 IU/KG, EVERY 5 DAYS
     Dates: start: 201812, end: 201905
  3. JIVI [Suspect]
     Active Substance: DAMOCTOCOG ALFA PEGOL
     Indication: FACTOR VIII DEFICIENCY
     Dosage: 30 IU/KG, BIW
     Dates: start: 2013, end: 201812

REACTIONS (1)
  - Arthropathy [None]
